FAERS Safety Report 7354581-9 (Version None)
Quarter: 2011Q1

REPORT INFORMATION
  Report Type: 
  Country: None (occurrence: None)
  Receive Date: 20110316
  Receipt Date: 20110311
  Transmission Date: 20110831
  Serious: Yes (Death, Other)
  Sender: FDA-Public Use
  Company Number: JP-BAYER-201010497BYL

PATIENT
  Age: 69 Year
  Sex: Male
  Weight: 56 kg

DRUGS (13)
  1. CALBLOCK [Concomitant]
     Dosage: SINCE BEFORE ADMINISTRATION
     Route: 048
  2. LIVACT [Concomitant]
     Dosage: SINCE BEFORE ADMINISTRATION
     Route: 048
  3. EURODIN [Concomitant]
     Dosage: SINCE BEFORE ADMINISTRATION
     Route: 048
  4. NEXAVAR [Suspect]
     Indication: HEPATIC NEOPLASM MALIGNANT
     Route: 048
     Dates: start: 20090629, end: 20090805
  5. OXYCONTIN [Concomitant]
     Dosage: SINCE BEFORE ADMINISTRATION
     Route: 048
  6. OMEPRAL [Concomitant]
     Dosage: SINCE BEFORE ADMINISTRATION
     Route: 048
  7. ZYLORIC [Concomitant]
     Dosage: SINCE BEFORE ADMINISTRATION
     Route: 048
  8. AMARYL [Concomitant]
     Dosage: SINCE BEFORE ADMINISTRATION
     Route: 048
  9. FALKAMIN [Concomitant]
     Dosage: 3 DF, UNK
     Route: 048
  10. ARTIST [Concomitant]
     Dosage: SINCE BEFORE ADMINISTRATION
     Route: 048
  11. NEXAVAR [Suspect]
     Dosage: 400 MG (DAILY DOSE), , ORAL
     Route: 048
     Dates: start: 20090806, end: 20100406
  12. OMEPRAL [Concomitant]
     Dosage: 20 MG (DAILY DOSE), , INTRAVENOUS
     Route: 042
     Dates: start: 20100406, end: 20100406
  13. TANATRIL [Concomitant]
     Dosage: SINCE BEFORE ADMINISTRATION
     Route: 048

REACTIONS (6)
  - BLOOD PRESSURE DECREASED [None]
  - ANAEMIA [None]
  - RESPIRATORY ARREST [None]
  - HEPATIC FUNCTION ABNORMAL [None]
  - RASH [None]
  - HEPATIC FAILURE [None]
